FAERS Safety Report 7219698-8 (Version None)
Quarter: 2011Q1

REPORT INFORMATION
  Report Type: 
  Country: None (occurrence: None)
  Receive Date: 20110111
  Receipt Date: 20110104
  Transmission Date: 20110831
  Serious: Yes (Hospitalization, Other)
  Sender: FDA-Public Use
  Company Number: PHHY2011US00571

PATIENT
  Sex: Female

DRUGS (4)
  1. EXJADE [Suspect]
     Indication: CONGENITAL APLASTIC ANAEMIA
     Dosage: 375 MG, DAILY
     Route: 048
  2. DIAZEPAM [Concomitant]
     Indication: MUSCLE SPASTICITY
     Dosage: 0.5 MG, TID
  3. BUDESONIDE [Concomitant]
     Indication: BRONCHIAL HYPERREACTIVITY
     Dosage: 0.5 MG, BID
  4. MIRALAX [Concomitant]
     Indication: CONSTIPATION
     Dosage: 8.5 G, DAILY

REACTIONS (6)
  - PYREXIA [None]
  - HAEMOGLOBIN DECREASED [None]
  - VOMITING [None]
  - COUGH [None]
  - ADENOVIRUS INFECTION [None]
  - UPPER RESPIRATORY TRACT CONGESTION [None]
